FAERS Safety Report 4923337-6 (Version None)
Quarter: 2006Q1

REPORT INFORMATION
  Report Type: 
  Country: None (occurrence: None)
  Receive Date: 20060227
  Receipt Date: 20060216
  Transmission Date: 20060701
  Serious: Yes (Other)
  Sender: FDA-Public Use
  Company Number: US-JNJFOC-20060105752

PATIENT
  Sex: Female
  Weight: 77.11 kg

DRUGS (9)
  1. REMICADE [Suspect]
     Indication: INFLAMMATORY BOWEL DISEASE
     Dosage: 3 VIALS
     Route: 042
  2. REMICADE [Suspect]
     Indication: RHEUMATOID ARTHRITIS
     Dosage: 3 VIALS
     Route: 042
  3. LEXAPRO [Concomitant]
     Indication: DEPRESSION
  4. XANAX [Concomitant]
     Indication: ANXIETY
  5. METHOCARBAN [Concomitant]
     Indication: PAIN MANAGEMENT
  6. PROTONIX [Concomitant]
     Indication: IRRITABLE BOWEL SYNDROME
  7. NEURONTIN [Concomitant]
     Indication: CONVULSION PROPHYLAXIS
  8. BUSPAR [Concomitant]
     Indication: ANXIETY
  9. HYDROCODONE BITARTRATE [Concomitant]
     Indication: PAIN
     Dosage: 1-1.5 TABLETS, 2 IN 1 DAY

REACTIONS (7)
  - ARTHRALGIA [None]
  - BLOOD GLUCOSE INCREASED [None]
  - BONE PAIN [None]
  - EYE SWELLING [None]
  - JOINT SWELLING [None]
  - LYMPHADENOPATHY [None]
  - RASH [None]
